FAERS Safety Report 8702768 (Version 2)
Quarter: 2013Q4

REPORT INFORMATION
  Report Type: Spontaneous
  Country: US (occurrence: None)
  Receive Date: 20120719
  Receipt Date: 20131118
  Transmission Date: 20140711
  Serious: Yes (Hospitalization)
  Sender: FDA-Public Use
  Company Number: 2012032825

PATIENT
  Age: 77 Year
  Sex: Male
  Weight: 85.73 kg

DRUGS (46)
  1. HIZENTRA [Suspect]
     Indication: IMMUNODEFICIENCY COMMON VARIABLE
     Dosage: 10 G, 1X/WEEK 2 GM 10 ML VIAL;50 ML IN MULTIPLE SITES OVER 1-2 HOURS USING A PUMP SUBCUTANEOUS)
  2. OXYGEN (OXYGEN) [Concomitant]
  3. OXYCONTIN [Concomitant]
  4. DITROPAN [Concomitant]
  5. DIPHENHYDRAMINE HYDROCHLORIDE [Concomitant]
  6. LIDOCAINE PRILOCAINE (EMLA /00675501/) [Concomitant]
  7. EPIPEN [Concomitant]
  8. LMX (LIDOCAINE) [Concomitant]
  9. REMERON [Concomitant]
  10. LYRICA [Concomitant]
  11. POTASSIUM (POTASSIUM) [Concomitant]
  12. OXYCONTIN [Concomitant]
  13. ICAPS (ICAPS) [Concomitant]
  14. ISOSORBIDE (ISOSORBIDE) [Concomitant]
  15. NEXIUM (ESOMEPRAZOLE MAGNESIUM) [Concomitant]
  16. CRESTOR [Concomitant]
  17. WARFARIN SODIUM [Concomitant]
  18. PROBIOTIC (LACTOBACILLUS REUTERI) [Concomitant]
  19. VITAMINS [Concomitant]
  20. SPIRIVA [Concomitant]
  21. DEXAMETHASONE (DEXAMETHASONE) [Concomitant]
  22. PROZAC [Concomitant]
  23. THERA TEARS (CARMELLOSE) [Concomitant]
  24. ZANTAC [Concomitant]
  25. ALBUTEROL (SALBUTAMOL) [Concomitant]
  26. ZANAFLEX [Concomitant]
  27. MIRALAX [Concomitant]
  28. ARICEPT [Concomitant]
  29. DOMPERIDONE (DOMPERIDONE) [Concomitant]
  30. RESTASIS [Concomitant]
  31. QVAR [Concomitant]
  32. TRIAMCINOLONE [Concomitant]
  33. NEOSPORIN [Concomitant]
  34. LYRICA (PREGABALIN) [Concomitant]
  35. NORTRIPTYLINE [Concomitant]
  36. KEFLIX (CEFAXLEXIN) [Concomitant]
  37. POTASSIUM [Concomitant]
  38. XOPENEX (LEVOSALBUTAMOL) [Concomitant]
  39. LUNESTA (ESZOPICLONE) [Concomitant]
  40. LASIX (FUROSEMIDE) [Concomitant]
  41. PREDNISONE [Concomitant]
  42. TAMIFLU (OSELTAMIVIR) [Concomitant]
  43. ERYTHROMYCIN [Concomitant]
  44. PROTONIX (PANTOPRAZOLE) [Concomitant]
  45. METANX (ALL OTHER NON-THERAPEUTIC PRODUCTS) [Concomitant]
  46. BROVANA (ALL OTHER THERAPEUTIC PRODUCTS) [Concomitant]

REACTIONS (3)
  - Fatigue [None]
  - Pneumonia [None]
  - Infusion site pain [None]
